FAERS Safety Report 15812615 (Version 1)
Quarter: 2019Q1

REPORT INFORMATION
  Report Type: Spontaneous
  Country: US (occurrence: US)
  Receive Date: 20190110
  Receipt Date: 20190110
  Transmission Date: 20190417
  Serious: Yes (Hospitalization)
  Sender: FDA-Public Use
  Company Number: None

PATIENT
  Age: 45 Year
  Sex: Male

DRUGS (4)
  1. ENBREL [Suspect]
     Active Substance: ETANERCEPT
     Indication: RHEUMATOID ARTHRITIS
     Dosage: ?          OTHER FREQUENCY:QWK;?
     Route: 058
     Dates: start: 20180129
  2. OXYCODONE [Concomitant]
     Active Substance: OXYCODONE
  3. DICLOFENAC [Concomitant]
     Active Substance: DICLOFENAC
  4. GABAPENTIN. [Concomitant]
     Active Substance: GABAPENTIN

REACTIONS (1)
  - Hospitalisation [None]

NARRATIVE: CASE EVENT DATE: 20181220
